FAERS Safety Report 17010377 (Version 1)
Quarter: 2019Q4

REPORT INFORMATION
  Report Type: Report from Study
  Country: RO (occurrence: RO)
  Receive Date: 20191108
  Receipt Date: 20191108
  Transmission Date: 20200122
  Serious: Yes (Death)
  Sender: FDA-Public Use
  Company Number: RO-MYLANLABS-2019M1106482

PATIENT
  Age: 67 Year
  Sex: Male
  Weight: 56.6 kg

DRUGS (1)
  1. ERLOTINIB [Suspect]
     Active Substance: ERLOTINIB
     Indication: LUNG CANCER METASTATIC
     Dosage: 150 MILLIGRAM, QD, NO
     Route: 048
     Dates: start: 201812, end: 20190218

REACTIONS (3)
  - Death [Fatal]
  - Weight decreased [Unknown]
  - Drug ineffective [Unknown]

NARRATIVE: CASE EVENT DATE: 2019
